FAERS Safety Report 4457905-5 (Version None)
Quarter: 2004Q3

REPORT INFORMATION
  Report Type: 
  Country: None (occurrence: None)
  Receive Date: 20040924
  Receipt Date: 20040917
  Transmission Date: 20050211
  Serious: Yes (Other)
  Sender: FDA-Public Use
  Company Number: PHBS2004IN12451

PATIENT
  Age: 31 Year
  Sex: Female

DRUGS (4)
  1. IMIPRAM TAB [Suspect]
     Indication: SOCIAL AVOIDANT BEHAVIOUR
     Dosage: 25 MG, TID
     Route: 065
  2. CARBIDOPA AND LEVODOPA [Suspect]
     Indication: PARKINSONISM
     Dosage: 4 TABLETS/D
     Route: 048
  3. CARBIDOPA AND LEVODOPA [Suspect]
     Dosage: .5 DF, TID
     Route: 048
  4. TRIHEXYPHENIDYL HCL [Suspect]
     Indication: PARKINSONISM
     Dosage: 2 MG, QD
     Route: 065

REACTIONS (6)
  - CONDITION AGGRAVATED [None]
  - DELIRIUM [None]
  - DEPRESSED LEVEL OF CONSCIOUSNESS [None]
  - DROOLING [None]
  - PARKINSONISM [None]
  - UNEVALUABLE EVENT [None]
